FAERS Safety Report 25764460 (Version 1)
Quarter: 2025Q3

REPORT INFORMATION
  Report Type: Spontaneous
  Country: US (occurrence: US)
  Receive Date: 20250905
  Receipt Date: 20250905
  Transmission Date: 20251020
  Serious: No
  Sender: DOMPE FARMACEUTICI
  Company Number: US-FARMAPROD-202501-0025

PATIENT
  Age: 87 Year
  Sex: Female

DRUGS (16)
  1. OXERVATE [Suspect]
     Active Substance: CENEGERMIN-BKBJ
     Indication: Neurotrophic keratopathy
     Route: 047
     Dates: start: 20241202
  2. OMEPRAZOLE [Concomitant]
     Active Substance: OMEPRAZOLE
  3. TOPROL XL [Concomitant]
     Active Substance: METOPROLOL SUCCINATE
  4. MESALAMINE EXTENDED RELEASE [Concomitant]
  5. PEPCID [Concomitant]
     Active Substance: FAMOTIDINE
  6. PROLIA [Concomitant]
     Active Substance: DENOSUMAB
  7. ESTRADIOL [Concomitant]
     Active Substance: ESTRADIOL
  8. DORZOLAMIDE\TIMOLOL [Concomitant]
     Active Substance: DORZOLAMIDE\TIMOLOL
  9. THERATEARS [Concomitant]
     Active Substance: CARBOXYMETHYLCELLULOSE SODIUM
  10. VITAMIN C [Concomitant]
     Active Substance: ASCORBIC ACID
  11. CALCIUM CARBONATE\VITAMIN D [Concomitant]
     Active Substance: CALCIUM CARBONATE\VITAMIN D
  12. SELENIUM [Concomitant]
     Active Substance: SELENIUM
  13. FISH OIL [Concomitant]
     Active Substance: FISH OIL
  14. CHONDROITIN SULFATE (BOVINE)\GLUCOSAMINE [Concomitant]
     Active Substance: CHONDROITIN SULFATE (BOVINE)\GLUCOSAMINE SULFATE
  15. BENADRYL ALLERGY [Concomitant]
     Active Substance: DIPHENHYDRAMINE HYDROCHLORIDE
  16. MELOXICAM [Concomitant]
     Active Substance: MELOXICAM

REACTIONS (4)
  - Product dose omission issue [Unknown]
  - Eye pain [Not Recovered/Not Resolved]
  - Tendon rupture [Unknown]
  - Dry eye [Unknown]

NARRATIVE: CASE EVENT DATE: 20241230
